FAERS Safety Report 5066217-0 (Version None)
Quarter: 2006Q3

REPORT INFORMATION
  Report Type: 
  Country: None (occurrence: None)
  Receive Date: 20060801
  Receipt Date: 20060720
  Transmission Date: 20061208
  Serious: Yes (Hospitalization)
  Sender: FDA-Public Use
  Company Number: NSADSS2003008784

PATIENT
  Sex: Female

DRUGS (10)
  1. REMICADE [Suspect]
     Indication: RHEUMATOID ARTHRITIS
     Route: 041
     Dates: start: 20010212
  2. ATACAND [Concomitant]
  3. FOLIC ACID [Concomitant]
  4. METHOTREXATE [Concomitant]
  5. VIOXX [Concomitant]
  6. PREVACID [Concomitant]
  7. FOSAMAX [Concomitant]
  8. SALAGEN [Concomitant]
  9. MULTIVITAMIN [Concomitant]
  10. TYLENOL [Concomitant]

REACTIONS (7)
  - ABDOMINAL STRANGULATED HERNIA [None]
  - ASPIRATION [None]
  - CEREBROVASCULAR ACCIDENT [None]
  - CONSTIPATION [None]
  - FEMORAL HERNIA [None]
  - INTESTINAL ISCHAEMIA [None]
  - VOMITING [None]
